FAERS Safety Report 4360436-4 (Version None)
Quarter: 2004Q2

REPORT INFORMATION
  Report Type: 
  Country: None (occurrence: None)
  Receive Date: 20040514
  Receipt Date: 20040429
  Transmission Date: 20050107
  Serious: Yes (Death, Hospitalization)
  Sender: FDA-Public Use
  Company Number: 2004-BP-02977CL

PATIENT
  Age: 79 Year
  Sex: Male

DRUGS (5)
  1. SPIRIVA [Suspect]
     Indication: CHRONIC OBSTRUCTIVE AIRWAYS DISEASE
     Dosage: 18 MCG (18 MCG, 1 KAI O.D)
     Route: 055
     Dates: start: 20031023, end: 20040413
  2. NORVASC [Concomitant]
  3. THEOPHYLINE (TA) [Concomitant]
  4. OXYGEN (OXYGEN) [Concomitant]
  5. SALBUTAMOL (SALBUTAMOL) [Concomitant]

REACTIONS (1)
  - CARDIAC FAILURE [None]
